FAERS Safety Report 14568337 (Version 1)
Quarter: 2018Q1

REPORT INFORMATION
  Report Type: Spontaneous
  Country: GB (occurrence: GB)
  Receive Date: 20180223
  Receipt Date: 20180223
  Transmission Date: 20180509
  Serious: Yes (Other)
  Sender: FDA-Public Use
  Company Number: GB-SEPTODONT-201804506

PATIENT
  Age: 60 Year
  Sex: Female

DRUGS (7)
  1. BENZOCAINE 20% [Concomitant]
     Active Substance: BENZOCAINE
     Indication: DENTAL LOCAL ANAESTHESIA
     Dosage: APPLIED OVER THE SITE OF THE INFILTRATION
     Dates: start: 201607
  2. PINDOLOL. [Concomitant]
     Active Substance: PINDOLOL
     Indication: PRODUCT USED FOR UNKNOWN INDICATION
  3. SODIUM VALPROATE [Concomitant]
     Active Substance: VALPROATE SODIUM
     Indication: PRODUCT USED FOR UNKNOWN INDICATION
  4. NAPROXEN. [Concomitant]
     Active Substance: NAPROXEN
     Indication: PRODUCT USED FOR UNKNOWN INDICATION
  5. LIDOCAINE 1:80,000 ADRENALINE [Suspect]
     Active Substance: EPINEPHRINE\LIDOCAINE
     Indication: DENTAL LOCAL ANAESTHESIA
     Dosage: BY IANB
     Dates: start: 201605
  6. OMEPRAZOLE. [Concomitant]
     Active Substance: OMEPRAZOLE
     Indication: PRODUCT USED FOR UNKNOWN INDICATION
  7. 4% ARTICAINE WITH 1:100 000 [Suspect]
     Active Substance: ARTICAINE HYDROCHLORIDE\EPINEPHRINE BITARTRATE
     Indication: DENTAL LOCAL ANAESTHESIA
     Dates: start: 201607

REACTIONS (1)
  - Headache [Unknown]

NARRATIVE: CASE EVENT DATE: 201605
